FAERS Safety Report 5360210-6 (Version None)
Quarter: 2007Q2

REPORT INFORMATION
  Report Type: 
  Country: None (occurrence: None)
  Receive Date: 20070618
  Receipt Date: 20070611
  Transmission Date: 20071010
  Serious: Yes (Hospitalization)
  Sender: FDA-Public Use
  Company Number: PHBS2007IT09919

PATIENT
  Age: 35 Year
  Sex: Male

DRUGS (2)
  1. VOLTAREN [Suspect]
     Indication: RENAL COLIC
     Dosage: 100 MG/DAY
     Route: 054
     Dates: start: 20070226, end: 20070322
  2. AULIN [Suspect]
     Indication: RENAL COLIC
     Dosage: 200 MG/DAY
     Route: 048
     Dates: start: 20070226, end: 20070322

REACTIONS (5)
  - ABDOMINAL PAIN [None]
  - BACK PAIN [None]
  - NAUSEA [None]
  - PYELONEPHRITIS ACUTE [None]
  - VOMITING [None]
